FAERS Safety Report 8109720-9 (Version None)
Quarter: 2012Q1

REPORT INFORMATION
  Report Type: 
  Country: None (occurrence: None)
  Receive Date: 20120202
  Receipt Date: 20120118
  Transmission Date: 20120608
  Serious: No
  Sender: FDA-Public Use
  Company Number: US-AMGEN-USASP2011044881

PATIENT
  Age: 63 Year
  Sex: Female

DRUGS (3)
  1. ENBREL [Suspect]
     Indication: PSORIATIC ARTHROPATHY
     Dosage: 50 MG, QWK
     Dates: start: 20110815
  2. METHOTREXATE [Concomitant]
     Dosage: 2 MG, QWK
     Dates: start: 20110101
  3. ENBREL [Suspect]
     Indication: PSORIASIS

REACTIONS (13)
  - COUGH [None]
  - EPISTAXIS [None]
  - PAIN [None]
  - FEELING DRUNK [None]
  - FATIGUE [None]
  - INCREASED UPPER AIRWAY SECRETION [None]
  - MUSCULOSKELETAL PAIN [None]
  - NECK PAIN [None]
  - SEASONAL ALLERGY [None]
  - IMPAIRED DRIVING ABILITY [None]
  - HEPATIC ENZYME INCREASED [None]
  - ABDOMINAL PAIN [None]
  - MYCOBACTERIUM TUBERCULOSIS COMPLEX TEST POSITIVE [None]
